FAERS Safety Report 15662824 (Version 3)
Quarter: 2019Q1

REPORT INFORMATION
  Report Type: Report from Study
  Country: None (occurrence: US)
  Receive Date: 20181127
  Receipt Date: 20190329
  Transmission Date: 20190417
  Serious: Yes (Other)
  Sender: FDA-Public Use
  Company Number: US-ABBVIE-18K-163-2568607-00

PATIENT
  Sex: Male

DRUGS (2)
  1. HUMIRA [Suspect]
     Active Substance: ADALIMUMAB
     Indication: PSORIATIC ARTHROPATHY
     Route: 058
  2. HUMIRA [Suspect]
     Active Substance: ADALIMUMAB
     Indication: ANKYLOSING SPONDYLITIS

REACTIONS (7)
  - Accident [Unknown]
  - Rocky mountain spotted fever [Unknown]
  - Skin exfoliation [Not Recovered/Not Resolved]
  - Limb injury [Unknown]
  - Nerve compression [Unknown]
  - Condition aggravated [Unknown]
  - Arthropod bite [Unknown]
